FAERS Safety Report 8427915-1 (Version None)
Quarter: 2012Q2

REPORT INFORMATION
  Report Type: 
  Country: None (occurrence: None)
  Receive Date: 20120611
  Receipt Date: 20120606
  Transmission Date: 20120825
  Serious: Yes (Hospitalization)
  Sender: FDA-Public Use
  Company Number: DE-ROCHE-791703

PATIENT
  Sex: Male
  Weight: 110 kg

DRUGS (15)
  1. SPIRONOLACTONE [Concomitant]
  2. MORPHINE [Concomitant]
     Dosage: DRUG NAME: 2 % IG MORPHIN, TDD : 3 X 5 IF REQUIRED
  3. FLUOROURACIL [Suspect]
     Dosage: LAST DOSE PRIOR TO SAE: 01 JUL 2011,I.V. FORM: INFUSION, IUNIT: 1200MG, FREQUENCY:D1,2,15,25,29,30
     Route: 042
  4. OXALIPLATIN [Suspect]
     Indication: COLORECTAL CANCER METASTATIC
     Dosage: DATE OF LAST DOSE PRIOR TO SAE:30 JUNE 2011, UNITS; 170 MG, DOSE FORM: INFUSION.LAST DOSE PRIOR TO S
     Route: 042
  5. ZOPICLONE [Concomitant]
     Dosage: IF REQUIRED.
  6. LEUCOVORIN CALCIUM [Suspect]
     Indication: COLORECTAL CANCER METASTATIC
     Dosage: DOSE FORM: INFUSION, UNITS: 400 MG. LAST DOSE PRIOR TO SAE : 01 JULY 2011
     Route: 042
  7. ESOMEPRAZOLE [Concomitant]
     Dosage: DRUG NAME: ESOMEPRAZOLE/ HEMIMAGNESIUM
  8. TORSEMIDE [Concomitant]
  9. PANTOPRAZOLE [Concomitant]
  10. TETRAZEPAM [Concomitant]
     Dosage: IF REQUIRED.
  11. FLUOROURACIL [Suspect]
     Indication: COLORECTAL CANCER METASTATIC
     Dosage: FORM: INFUSION, UNITS: 800 MG, IV BOLUS, FREQUENCY: D 1, 2, 15, 25, 29, 30. LAST DOSE : 01 JUL 2011
     Route: 040
  12. LEVOTHYROXIN-NATRIUM [Concomitant]
  13. LORAZEPAM [Concomitant]
     Dosage: TDD : 25 MG IF REQUIRED
  14. ALLOPURINOL [Concomitant]
  15. AVASTIN [Suspect]
     Indication: COLORECTAL CANCER METASTATIC
     Dosage: UNITS: 560 MG, DOSAGE FORM: INFUSION;LAST DOSE DATE PRIOR TO SAE 30 JUNE 2011.
     Route: 042

REACTIONS (1)
  - BILIARY COLIC [None]
